FAERS Safety Report 24358874 (Version 1)
Quarter: 2024Q3

REPORT INFORMATION
  Report Type: Spontaneous
  Country: US (occurrence: US)
  Receive Date: 20240924
  Receipt Date: 20240924
  Transmission Date: 20241016
  Serious: Yes (Other)
  Sender: MYLAN
  Company Number: US-MYLANLABS-2024M1086687

PATIENT
  Sex: Male

DRUGS (1)
  1. NORVASC [Suspect]
     Active Substance: AMLODIPINE BESYLATE
     Indication: Hypertension
     Dosage: UNK
     Route: 065

REACTIONS (5)
  - Choking [Recovered/Resolved]
  - Blood pressure increased [Recovered/Resolved]
  - Allergic reaction to excipient [Recovered/Resolved]
  - Cough [Recovered/Resolved]
  - Product taste abnormal [Recovered/Resolved]
